FAERS Safety Report 6742389-4 (Version None)
Quarter: 2010Q2

REPORT INFORMATION
  Report Type: 
  Country: None (occurrence: None)
  Receive Date: 20100526
  Receipt Date: 20100517
  Transmission Date: 20101027
  Serious: Yes (Other)
  Sender: FDA-Public Use
  Company Number: CH-JNJCH-2010011857

PATIENT
  Age: 85 Year
  Sex: Female

DRUGS (1)
  1. REGAINE 2% [Suspect]
     Indication: ALOPECIA
     Dosage: TEXT:UNKNOWN
     Route: 061

REACTIONS (4)
  - DYSPNOEA [None]
  - PALPITATIONS [None]
  - VERTIGO [None]
  - WRONG DRUG ADMINISTERED [None]
